FAERS Safety Report 19165844 (Version 1)
Quarter: 2021Q2

REPORT INFORMATION
  Report Type: Spontaneous
  Country: US (occurrence: US)
  Receive Date: 20210422
  Receipt Date: 20210422
  Transmission Date: 20210717
  Serious: Yes (Other)
  Sender: FDA-Public Use
  Company Number: US-ASTRAZENECA-2021A337510

PATIENT
  Weight: 86.2 kg

DRUGS (5)
  1. OMEPRAZOLE. [Suspect]
     Active Substance: OMEPRAZOLE
     Indication: PRODUCT USED FOR UNKNOWN INDICATION
     Dosage: GENERIC
     Route: 065
     Dates: start: 2012, end: 2018
  2. PREVACID [Suspect]
     Active Substance: LANSOPRAZOLE
     Indication: PRODUCT USED FOR UNKNOWN INDICATION
     Route: 065
     Dates: start: 201807
  3. OMEPRAZOLE. [Suspect]
     Active Substance: OMEPRAZOLE
     Indication: PRODUCT USED FOR UNKNOWN INDICATION
     Route: 048
     Dates: start: 20130514, end: 20170811
  4. PREVACID 24 HR [Suspect]
     Active Substance: LANSOPRAZOLE
     Indication: PRODUCT USED FOR UNKNOWN INDICATION
     Route: 065
     Dates: start: 2009, end: 2010
  5. NEXIUM 24HR [Suspect]
     Active Substance: ESOMEPRAZOLE MAGNESIUM
     Indication: PRODUCT USED FOR UNKNOWN INDICATION
     Route: 048
     Dates: start: 2014, end: 2018

REACTIONS (13)
  - Renal cell carcinoma [Unknown]
  - Chronic kidney disease [Unknown]
  - Nephrectomy [Unknown]
  - Glomerulosclerosis [Unknown]
  - Renal impairment [Unknown]
  - Diabetic nephropathy [Unknown]
  - Renal cancer [Unknown]
  - Nephropathy [Unknown]
  - Haematuria [Unknown]
  - Nocturia [Unknown]
  - Renal cyst [Unknown]
  - Hypertensive nephropathy [Unknown]
  - Proteinuria [Unknown]

NARRATIVE: CASE EVENT DATE: 201804
